FAERS Safety Report 6779409-7 (Version None)
Quarter: 2010Q2

REPORT INFORMATION
  Report Type: 
  Country: None (occurrence: None)
  Receive Date: 20100618
  Receipt Date: 20100616
  Transmission Date: 20101027
  Serious: Yes (Life-Threatening, Other)
  Sender: FDA-Public Use
  Company Number: PHHY2009CA29907

PATIENT
  Sex: Male

DRUGS (4)
  1. ACLASTA [Suspect]
     Indication: OSTEOPOROSIS
     Dosage: 5 MG, ONCE/SINGLE
     Dates: start: 20090706
  2. LIPITOR [Concomitant]
     Dosage: 20 MG, QD
  3. ELTROXIN [Concomitant]
     Dosage: 0.1 MG, QD
  4. VASOTEC [Concomitant]
     Dosage: 10 MG, BID

REACTIONS (6)
  - BACK PAIN [None]
  - BONE PAIN [None]
  - CONSTIPATION [None]
  - FEELING ABNORMAL [None]
  - MUSCULOSKELETAL STIFFNESS [None]
  - PAIN [None]
